FAERS Safety Report 9563032 (Version 2)
Quarter: 2014Q2

REPORT INFORMATION
  Report Type: Spontaneous
  Country: US (occurrence: US)
  Receive Date: 20130927
  Receipt Date: 20140515
  Transmission Date: 20141212
  Serious: Yes (Death, Hospitalization, Disabling, Other)
  Sender: FDA-Public Use
  Company Number: US-009507513-1309USA013675

PATIENT
  Sex: Female
  Weight: 110.2 kg

DRUGS (9)
  1. JANUVIA [Suspect]
     Indication: TYPE 2 DIABETES MELLITUS
     Dosage: 100 MG, QD
     Route: 048
     Dates: start: 20080120, end: 20080122
  2. JANUVIA [Suspect]
     Dosage: 100 MG, QD
     Route: 048
     Dates: start: 20080128, end: 20080804
  3. METFORMIN [Concomitant]
     Indication: TYPE 2 DIABETES MELLITUS
     Dosage: 1 G, BID
  4. ACTOS [Concomitant]
     Indication: TYPE 2 DIABETES MELLITUS
  5. GLUCOPHAGE [Concomitant]
     Indication: TYPE 2 DIABETES MELLITUS
  6. GLYBURIDE [Concomitant]
     Indication: TYPE 2 DIABETES MELLITUS
     Dosage: 10 MG, BID
  7. AVANDIA [Concomitant]
     Indication: TYPE 2 DIABETES MELLITUS
  8. LANTUS [Concomitant]
     Indication: TYPE 2 DIABETES MELLITUS
  9. INSULIN LISPRO [Concomitant]
     Indication: TYPE 2 DIABETES MELLITUS

REACTIONS (30)
  - Pancreatic carcinoma metastatic [Fatal]
  - Metastases to liver [Unknown]
  - Stent placement [Unknown]
  - Explorative laparotomy [Unknown]
  - Cellulitis [Unknown]
  - Metastases to peritoneum [Unknown]
  - Debridement [Unknown]
  - Debridement [Unknown]
  - Bile duct stent insertion [Unknown]
  - Renal failure acute [Unknown]
  - Renal failure chronic [Unknown]
  - Diverticulum intestinal [Unknown]
  - Hyperkalaemia [Recovered/Resolved]
  - Dehydration [Unknown]
  - Anxiety [Unknown]
  - Glycosuria [Unknown]
  - Sinus tachycardia [Unknown]
  - Bundle branch block right [Unknown]
  - Diabetes mellitus inadequate control [Unknown]
  - Bile duct obstruction [Unknown]
  - Ascites [Unknown]
  - Pleural effusion [Unknown]
  - Arthritis [Unknown]
  - Spinal laminectomy [Unknown]
  - Generalised oedema [Unknown]
  - Cholestasis [Unknown]
  - Atelectasis [Unknown]
  - Gastrooesophageal reflux disease [Unknown]
  - Hypoglycaemia [Recovered/Resolved]
  - Abdominal pain lower [Unknown]
